FAERS Safety Report 7298254-X (Version None)
Quarter: 2011Q1

REPORT INFORMATION
  Report Type: 
  Country: None (occurrence: None)
  Receive Date: 20110217
  Receipt Date: 20100419
  Transmission Date: 20110831
  Serious: No
  Sender: FDA-Public Use
  Company Number: US-PFIZER INC-2010050010

PATIENT
  Sex: Female
  Weight: 67.574 kg

DRUGS (8)
  1. XALATAN [Suspect]
     Indication: GLAUCOMA
     Dosage: UNK, DAILY
  2. NITROGLYCERIN [Concomitant]
  3. PROGESTERONE [Concomitant]
  4. PREMARIN [Concomitant]
  5. CALCIUM [Concomitant]
  6. LASIX [Concomitant]
  7. THEOPHYLLINE [Concomitant]
  8. POTASSIUM [Concomitant]

REACTIONS (1)
  - EYE IRRITATION [None]
